FAERS Safety Report 15280421 (Version 1)
Quarter: 2018Q3

REPORT INFORMATION
  Report Type: Spontaneous
  Country: US (occurrence: US)
  Receive Date: 20180815
  Receipt Date: 20180815
  Transmission Date: 20181010
  Serious: Yes (Other)
  Sender: FDA-Public Use
  Company Number: US-GLAXOSMITHKLINE-US2018143549

PATIENT
  Age: 49 Year
  Sex: Female

DRUGS (1)
  1. BENLYSTA [Suspect]
     Active Substance: BELIMUMAB
     Indication: SYSTEMIC LUPUS ERYTHEMATOSUS
     Dosage: UNK UNK, U
     Route: 042
     Dates: start: 2012

REACTIONS (8)
  - Seizure [Recovered/Resolved]
  - Hysterectomy [Unknown]
  - Biopsy ovary [Unknown]
  - Arthroscopy [Unknown]
  - Autoimmune thyroiditis [Unknown]
  - Hypersensitivity [Unknown]
  - Adrenal insufficiency [Recovered/Resolved]
  - Psoriasis [Unknown]

NARRATIVE: CASE EVENT DATE: 2012
